FAERS Safety Report 24712019 (Version 3)
Quarter: 2025Q1

REPORT INFORMATION
  Report Type: Spontaneous
  Country: JP (occurrence: JP)
  Receive Date: 20241209
  Receipt Date: 20250113
  Transmission Date: 20250409
  Serious: Yes (Other)
  Sender: ALEXION PHARMACEUTICALS
  Company Number: JP-ASTRAZENECA-240108661_063010_P_1

PATIENT
  Age: 74 Year

DRUGS (28)
  1. DAPAGLIFLOZIN [Suspect]
     Active Substance: DAPAGLIFLOZIN
     Indication: Chronic kidney disease
     Dosage: AFTER BREAKFAST
  2. DAPAGLIFLOZIN [Suspect]
     Active Substance: DAPAGLIFLOZIN
     Dosage: AFTER BREAKFAST
     Route: 048
  3. DAPAGLIFLOZIN [Suspect]
     Active Substance: DAPAGLIFLOZIN
     Dosage: AFTER BREAKFAST
  4. DAPAGLIFLOZIN [Suspect]
     Active Substance: DAPAGLIFLOZIN
     Dosage: AFTER BREAKFAST
     Route: 048
  5. DAPAGLIFLOZIN [Suspect]
     Active Substance: DAPAGLIFLOZIN
     Dosage: AFTER BREAKFAST
  6. DAPAGLIFLOZIN [Suspect]
     Active Substance: DAPAGLIFLOZIN
     Dosage: AFTER BREAKFAST
     Route: 048
  7. DAPAGLIFLOZIN [Suspect]
     Active Substance: DAPAGLIFLOZIN
     Dosage: AFTER BREAKFAST
  8. DAPAGLIFLOZIN [Suspect]
     Active Substance: DAPAGLIFLOZIN
     Dosage: AFTER BREAKFAST
     Route: 048
  9. BISOPROLOL FUMARATE [Concomitant]
     Active Substance: BISOPROLOL FUMARATE
     Dosage: AFTER BREAKFAST AND EVENING MEAL
     Route: 048
  10. BISOPROLOL FUMARATE [Concomitant]
     Active Substance: BISOPROLOL FUMARATE
     Dosage: AFTER BREAKFAST AND EVENING MEAL
  11. ISOSORBIDE DINITRATE [Concomitant]
     Active Substance: ISOSORBIDE DINITRATE
     Indication: Vasodilatation
     Dosage: AFTER EVENING MEAL
     Route: 048
  12. ISOSORBIDE DINITRATE [Concomitant]
     Active Substance: ISOSORBIDE DINITRATE
     Dosage: AFTER EVENING MEAL
  13. NIFEDIPINE [Concomitant]
     Active Substance: NIFEDIPINE
     Indication: Vasodilatation
     Dosage: AFTER BREAKFAST AND EVENING MEAL
  14. NIFEDIPINE [Concomitant]
     Active Substance: NIFEDIPINE
     Dosage: AFTER BREAKFAST AND EVENING MEAL
     Route: 048
  15. NIFEDIPINE [Concomitant]
     Active Substance: NIFEDIPINE
     Dosage: AFTER BREAKFAST AND EVENING MEAL
  16. NIFEDIPINE [Concomitant]
     Active Substance: NIFEDIPINE
     Dosage: AFTER BREAKFAST AND EVENING MEAL
     Route: 048
  17. NIFEDIPINE [Concomitant]
     Active Substance: NIFEDIPINE
  18. NIFEDIPINE [Concomitant]
     Active Substance: NIFEDIPINE
     Route: 048
  19. TOPIROXOSTAT [Concomitant]
     Active Substance: TOPIROXOSTAT
     Indication: Hyperuricaemia
     Dosage: AFTER BREAKFAST AND EVENING MEAL
     Route: 048
  20. TOPIROXOSTAT [Concomitant]
     Active Substance: TOPIROXOSTAT
     Dosage: AFTER BREAKFAST AND EVENING MEAL
  21. ICOSAPENT ETHYL [Concomitant]
     Active Substance: ICOSAPENT ETHYL
     Dosage: AFTER BREAKFAST AND EVENING MEAL
     Route: 048
  22. ICOSAPENT ETHYL [Concomitant]
     Active Substance: ICOSAPENT ETHYL
     Dosage: AFTER BREAKFAST AND EVENING MEAL
  23. PITAVASTATIN [Concomitant]
     Active Substance: PITAVASTATIN
     Dosage: AFTER EVENING MEAL
     Route: 048
  24. PITAVASTATIN [Concomitant]
     Active Substance: PITAVASTATIN
     Dosage: AFTER EVENING MEAL
  25. VALSARTAN [Concomitant]
     Active Substance: VALSARTAN
     Indication: Hypertension
     Dosage: AFTER EVENING MEAL
     Route: 048
  26. VALSARTAN [Concomitant]
     Active Substance: VALSARTAN
     Dosage: AFTER EVENING MEAL
  27. PITAVASTATIN CALCIUM [Concomitant]
     Active Substance: PITAVASTATIN CALCIUM
     Dosage: AFTER EVENING MEAL
     Route: 048
  28. PITAVASTATIN CALCIUM [Concomitant]
     Active Substance: PITAVASTATIN CALCIUM
     Dosage: AFTER EVENING MEAL

REACTIONS (1)
  - Microscopic polyangiitis [Recovering/Resolving]
